FAERS Safety Report 16017364 (Version 1)
Quarter: 2019Q1

REPORT INFORMATION
  Report Type: Report from Study
  Country: US (occurrence: US)
  Receive Date: 20190228
  Receipt Date: 20190228
  Transmission Date: 20190418
  Serious: Yes (Hospitalization, Other)
  Sender: FDA-Public Use
  Company Number: US-AMGEN-USASP2014040852

PATIENT
  Age: 80 Year
  Sex: Female

DRUGS (6)
  1. BIOTIN [Concomitant]
     Active Substance: BIOTIN
     Dosage: AT DINNER
     Route: 065
  2. PROBIOTIC [Concomitant]
     Active Substance: PROBIOTICS NOS
     Dosage: UNK
     Route: 065
  3. CENTRUM SILVER [Concomitant]
     Active Substance: MINERALS\VITAMINS
     Dosage: IN THE MORNING
     Route: 065
  4. PROLIA [Suspect]
     Active Substance: DENOSUMAB
     Indication: OSTEOPOROSIS
     Dosage: UNK
     Route: 065
  5. GLUCOSAMINE + CHONDROITIN [Concomitant]
     Dosage: UNK
     Route: 065
  6. CALTRATE WITH VITAMIN D [Concomitant]
     Active Substance: CALCIUM CARBONATE\CHOLECALCIFEROL
     Dosage: AT NIGHT
     Route: 065

REACTIONS (19)
  - Hypertension [Recovered/Resolved]
  - Somnolence [Unknown]
  - Pain [Unknown]
  - Subdural haematoma [Recovering/Resolving]
  - Contusion [Unknown]
  - Tooth fracture [Unknown]
  - Blood cholesterol abnormal [Unknown]
  - Tooth disorder [Unknown]
  - Bone density abnormal [Unknown]
  - Loss of consciousness [Unknown]
  - Fall [Unknown]
  - Osteoarthritis [Unknown]
  - Hypersensitivity [Unknown]
  - Bone disorder [Unknown]
  - Asthma [Unknown]
  - Facial bones fracture [Unknown]
  - Eye contusion [Unknown]
  - Intervertebral disc degeneration [Unknown]
  - Vitamin D decreased [Unknown]

NARRATIVE: CASE EVENT DATE: 201312
